FAERS Safety Report 12906252 (Version 3)
Quarter: 2016Q4

REPORT INFORMATION
  Report Type: Report from Study
  Country: BR (occurrence: BR)
  Receive Date: 20161103
  Receipt Date: 20161116
  Transmission Date: 20170207
  Serious: No
  Sender: FDA-Public Use
  Company Number: PHHY2016BR150477

PATIENT
  Age: 82 Year
  Sex: Female
  Weight: 67 kg

DRUGS (2)
  1. ARADOIS [Concomitant]
     Active Substance: LOSARTAN POTASSIUM
     Indication: BLOOD PRESSURE ABNORMAL
     Dosage: 1 DF, QD
     Route: 048
  2. EXELON PATCH [Suspect]
     Active Substance: RIVASTIGMINE
     Indication: MEMORY IMPAIRMENT
     Dosage: 4.6 MG, QD PATCH 5 (CM2)
     Route: 062
     Dates: start: 20161102, end: 20161103

REACTIONS (4)
  - Malaise [Unknown]
  - Balance disorder [Recovered/Resolved]
  - Nausea [Recovered/Resolved]
  - Somnolence [Unknown]

NARRATIVE: CASE EVENT DATE: 20161102
